FAERS Safety Report 23332066 (Version 1)
Quarter: 2023Q4

REPORT INFORMATION
  Report Type: Spontaneous
  Country: FR (occurrence: FR)
  Receive Date: 20231222
  Receipt Date: 20231222
  Transmission Date: 20240109
  Serious: Yes (Congenital Anomaly)
  Sender: FDA-Public Use
  Company Number: FR-CATALYST PHARMACEUTICALS, INC-FR-CATA-23-00705

PATIENT

DRUGS (1)
  1. FIRDAPSE [Suspect]
     Active Substance: AMIFAMPRIDINE PHOSPHATE
     Indication: Myasthenic syndrome
     Dosage: 15 MILLIGRAM, Q4H
     Route: 064
     Dates: start: 20230809

REACTIONS (1)
  - Meningomyelocele [Not Recovered/Not Resolved]

NARRATIVE: CASE EVENT DATE: 20231024
